FAERS Safety Report 25352433 (Version 1)
Quarter: 2025Q2

REPORT INFORMATION
  Report Type: Spontaneous
  Country: US (occurrence: None)
  Receive Date: 20250522
  Receipt Date: 20250522
  Transmission Date: 20250717
  Serious: Yes (Other)
  Sender: FDA-CTU
  Company Number: None

PATIENT
  Age: 54 Year
  Sex: Female
  Weight: 90 kg

DRUGS (10)
  1. ZEPBOUND [Suspect]
     Active Substance: TIRZEPATIDE
     Indication: Weight decreased
     Route: 058
     Dates: start: 20250516, end: 20250522
  2. ATORVASTATIN [Concomitant]
     Active Substance: ATORVASTATIN
     Dates: start: 20250101
  3. ELETRIPTAN [Concomitant]
     Active Substance: ELETRIPTAN
     Dates: start: 20250101
  4. HYDROCHLOROTHIAZIDE [Concomitant]
     Active Substance: HYDROCHLOROTHIAZIDE
     Dates: start: 20250101
  5. LISINOPRIL [Concomitant]
     Active Substance: LISINOPRIL
     Dates: start: 20250101
  6. MELOXICAM [Concomitant]
     Active Substance: MELOXICAM
     Dates: start: 20250101
  7. NEBIVOLOL [Concomitant]
     Active Substance: NEBIVOLOL
     Dates: start: 20250101
  8. NIFEDIPINE [Concomitant]
     Active Substance: NIFEDIPINE
     Dates: start: 20250101
  9. NURTEC ODT [Concomitant]
     Active Substance: RIMEGEPANT SULFATE
     Dates: start: 20250101
  10. OMEPRAZOLE [Concomitant]
     Active Substance: OMEPRAZOLE
     Dates: start: 20250101

REACTIONS (3)
  - Hypoglycaemia [None]
  - Blood pressure increased [None]
  - Cerebrovascular accident [None]

NARRATIVE: CASE EVENT DATE: 20250521
